FAERS Safety Report 11242695 (Version 1)
Quarter: 2015Q3

REPORT INFORMATION
  Report Type: Spontaneous
  Country: CZ (occurrence: CZ)
  Receive Date: 20150707
  Receipt Date: 20150707
  Transmission Date: 20151125
  Serious: Yes (Other)
  Sender: FDA-Public Use
  Company Number: PHHY2015CZ077484

PATIENT
  Sex: Female

DRUGS (1)
  1. IMATINIB [Suspect]
     Active Substance: IMATINIB
     Indication: CHRONIC MYELOID LEUKAEMIA
     Dosage: UNK
     Route: 048

REACTIONS (8)
  - Haematotoxicity [Recovering/Resolving]
  - Dyspepsia [Recovering/Resolving]
  - Fluid retention [Recovering/Resolving]
  - Toxicity to various agents [Recovering/Resolving]
  - Muscle spasms [Recovering/Resolving]
  - Hypokalaemia [Recovering/Resolving]
  - Cough [Recovering/Resolving]
  - Drug level increased [Unknown]
